FAERS Safety Report 5796796-7 (Version None)
Quarter: 2008Q3

REPORT INFORMATION
  Report Type: 
  Country: None (occurrence: None)
  Receive Date: 20080701
  Receipt Date: 20080623
  Transmission Date: 20090109
  Serious: Yes (Other)
  Sender: FDA-Public Use
  Company Number: US-JNJFOC-20080502064

PATIENT
  Sex: Male

DRUGS (3)
  1. REMICADE [Suspect]
     Route: 042
  2. REMICADE [Suspect]
     Indication: SARCOIDOSIS
     Route: 042
  3. CIALIS [Concomitant]
     Indication: ERECTILE DYSFUNCTION

REACTIONS (2)
  - INCREASED TENDENCY TO BRUISE [None]
  - THROMBOCYTOPENIA [None]
